FAERS Safety Report 5008067-7 (Version None)
Quarter: 2006Q2

REPORT INFORMATION
  Report Type: 
  Country: None (occurrence: None)
  Receive Date: 20060516
  Receipt Date: 20060503
  Transmission Date: 20061013
  Serious: Yes (Hospitalization)
  Sender: FDA-Public Use
  Company Number: MEDI-0004377

PATIENT
  Age: 6 Month
  Weight: 5.95 kg

DRUGS (1)
  1. SYNAGIS [Suspect]
     Indication: ANTIVIRAL PROPHYLAXIS
     Dosage: 89 MG, 1 IN 30 D, INTRAMUSCULAR
     Route: 030
     Dates: start: 20051017, end: 20060206

REACTIONS (3)
  - BRONCHIOLITIS [None]
  - GASTROENTERITIS [None]
  - LABORATORY TEST INTERFERENCE [None]
